FAERS Safety Report 7763757-8 (Version None)
Quarter: 2011Q3

REPORT INFORMATION
  Report Type: 
  Country: None (occurrence: None)
  Receive Date: 20110919
  Receipt Date: 20110908
  Transmission Date: 20111222
  Serious: Yes (Other)
  Sender: FDA-Public Use
  Company Number: 2011SP021272

PATIENT
  Sex: Female

DRUGS (2)
  1. PEGATRON (PEGYLATED INTERFERON ALFA-2B W/RIBAVIRIN) [Suspect]
     Indication: HEPATITIS C
     Dates: start: 20110411
  2. OLANZAPINE [Concomitant]

REACTIONS (13)
  - ANAEMIA [None]
  - MEMORY IMPAIRMENT [None]
  - BLOOD PRESSURE ORTHOSTATIC DECREASED [None]
  - INFLUENZA LIKE ILLNESS [None]
  - SYNCOPE [None]
  - SLEEP DISORDER [None]
  - HEPATITIS [None]
  - MOOD ALTERED [None]
  - MUSCLE SPASMS [None]
  - HYPERSOMNIA [None]
  - NIGHTMARE [None]
  - PLATELET COUNT DECREASED [None]
  - WHITE BLOOD CELL COUNT DECREASED [None]
